FAERS Safety Report 25777078 (Version 1)
Quarter: 2025Q3

REPORT INFORMATION
  Report Type: Spontaneous
  Country: US (occurrence: US)
  Receive Date: 20250909
  Receipt Date: 20250909
  Transmission Date: 20251020
  Serious: No
  Sender: DOMPE FARMACEUTICI
  Company Number: US-FARMAPROD-202410-3500

PATIENT
  Sex: Female

DRUGS (11)
  1. OXERVATE [Suspect]
     Active Substance: CENEGERMIN-BKBJ
     Indication: Neurotrophic keratopathy
     Route: 047
     Dates: start: 20241003, end: 20241129
  2. OXERVATE [Suspect]
     Active Substance: CENEGERMIN-BKBJ
  3. OXERVATE [Suspect]
     Active Substance: CENEGERMIN-BKBJ
  4. CEVIMELINE HYDROCHLORIDE [Concomitant]
     Active Substance: CEVIMELINE HYDROCHLORIDE
  5. IVIZIA [Concomitant]
     Active Substance: POVIDONE
  6. ERYTHROMYCIN [Concomitant]
     Active Substance: ERYTHROMYCIN
  7. OFLOXACIN [Concomitant]
     Active Substance: OFLOXACIN
  8. FLAREX [Concomitant]
     Active Substance: FLUOROMETHOLONE ACETATE
  9. ZIOPTAN [Concomitant]
     Active Substance: TAFLUPROST
  10. COSOPT [Concomitant]
     Active Substance: DORZOLAMIDE HYDROCHLORIDE\TIMOLOL MALEATE
  11. ERYTHROMYCIN [Concomitant]
     Active Substance: ERYTHROMYCIN

REACTIONS (5)
  - Disease progression [Not Recovered/Not Resolved]
  - Eye pain [Recovering/Resolving]
  - Dry eye [Recovering/Resolving]
  - Eye discharge [Not Recovered/Not Resolved]
  - Lacrimation increased [Recovering/Resolving]
